FAERS Safety Report 13839493 (Version 2)
Quarter: 2017Q3

REPORT INFORMATION
  Report Type: Report from Study
  Country: US (occurrence: US)
  Receive Date: 20170807
  Receipt Date: 20170818
  Transmission Date: 20171127
  Serious: Yes (Life-Threatening, Hospitalization)
  Sender: FDA-Public Use
  Company Number: US-ROCHE-1956870

PATIENT
  Age: 78 Year
  Sex: Male
  Weight: 67.59 kg

DRUGS (5)
  1. CARBOPLATIN. [Suspect]
     Active Substance: CARBOPLATIN
     Indication: TRANSITIONAL CELL CARCINOMA
     Dosage: MOST RECENT DOSE (283.05 MG): 06/JUN/2017?CONCENTRATION TIME CURVE (AUC) OF 4.5 MG/ML/MIN
     Route: 042
     Dates: start: 20170404
  2. METOPROLOL. [Concomitant]
     Active Substance: METOPROLOL
     Route: 042
  3. METOPROLOL TARTRATE. [Concomitant]
     Active Substance: METOPROLOL TARTRATE
     Route: 065
  4. GEMCITABINE [Suspect]
     Active Substance: GEMCITABINE\GEMCITABINE HYDROCHLORIDE
     Indication: TRANSITIONAL CELL CARCINOMA
     Dosage: MOST RECENT DOSE (1786 MG): 14/JUN/2017
     Route: 042
     Dates: start: 20170404
  5. ATEZOLIZUMAB. [Suspect]
     Active Substance: ATEZOLIZUMAB
     Indication: TRANSITIONAL CELL CARCINOMA
     Dosage: MOST RECENT DOSE: 06/JUN/2017
     Route: 042
     Dates: start: 20170404

REACTIONS (2)
  - Urosepsis [Recovered/Resolved]
  - Neutropenia [Recovered/Resolved]

NARRATIVE: CASE EVENT DATE: 20170626
